FAERS Safety Report 5010510-4 (Version None)
Quarter: 2006Q2

REPORT INFORMATION
  Report Type: 
  Country: None (occurrence: None)
  Receive Date: 20060525
  Receipt Date: 20050923
  Transmission Date: 20061013
  Serious: No
  Sender: FDA-Public Use
  Company Number: US-GLAXOSMITHKLINE-A0575709A

PATIENT
  Age: 72 Year
  Sex: Female

DRUGS (2)
  1. BACTROBAN [Suspect]
     Indication: PSORIASIS
     Dosage: 1APP TWICE PER DAY
     Route: 061
  2. NO CONCURRENT MEDICATION [Concomitant]

REACTIONS (1)
  - SKIN BURNING SENSATION [None]
